FAERS Safety Report 4834121-6 (Version None)
Quarter: 2005Q4

REPORT INFORMATION
  Report Type: 
  Country: None (occurrence: None)
  Receive Date: 20051122
  Receipt Date: 20050929
  Transmission Date: 20060501
  Serious: Yes (Hospitalization, Other)
  Sender: FDA-Public Use
  Company Number: JP-BRISTOL-MYERS SQUIBB COMPANY-13127162

PATIENT
  Age: 64 Year
  Sex: Female

DRUGS (9)
  1. VEPESID [Suspect]
     Indication: ACUTE LYMPHOCYTIC LEUKAEMIA
     Route: 041
     Dates: start: 20040422, end: 20040425
  2. ENDOXAN [Suspect]
     Indication: ACUTE LYMPHOCYTIC LEUKAEMIA
     Route: 041
     Dates: start: 20040401, end: 20040401
  3. DOXORUBICIN HCL [Suspect]
     Indication: ACUTE LYMPHOCYTIC LEUKAEMIA
     Route: 041
     Dates: start: 20040401, end: 20040401
  4. CYTARABINE [Suspect]
     Indication: ACUTE LYMPHOCYTIC LEUKAEMIA
     Route: 028
     Dates: start: 20040331, end: 20040331
  5. LEUKERIN [Concomitant]
     Indication: ACUTE LYMPHOCYTIC LEUKAEMIA
     Route: 048
     Dates: start: 20050422, end: 20050425
  6. GLEEVEC [Concomitant]
     Indication: ACUTE LYMPHOCYTIC LEUKAEMIA
     Route: 048
     Dates: start: 20050422, end: 20050428
  7. ONCOVIN [Concomitant]
     Route: 041
     Dates: start: 20040401, end: 20040401
  8. PREDONINE [Concomitant]
     Route: 041
     Dates: start: 20040401, end: 20040403
  9. METHOTREXATE [Concomitant]
     Route: 028
     Dates: start: 20040421, end: 20040421

REACTIONS (7)
  - CANDIDIASIS [None]
  - DIARRHOEA [None]
  - FEBRILE NEUTROPENIA [None]
  - LIVER ABSCESS [None]
  - SEPSIS [None]
  - SPLENIC ABSCESS [None]
  - STOMATITIS [None]
